FAERS Safety Report 24352259 (Version 1)
Quarter: 2024Q3

REPORT INFORMATION
  Report Type: Report from Study
  Country: IT (occurrence: IT)
  Receive Date: 20240923
  Receipt Date: 20240923
  Transmission Date: 20241016
  Serious: No
  Sender: ROCHE
  Company Number: IT-ROCHE-3044733

PATIENT
  Age: 56 Year
  Sex: Female
  Weight: 60.0 kg

DRUGS (22)
  1. HERCEPTIN [Suspect]
     Active Substance: TRASTUZUMAB
     Indication: HER2 positive breast cancer
     Dosage: FREQUENCY TEXT:OTHER
     Route: 042
     Dates: start: 20180621, end: 20180621
  2. HERCEPTIN [Suspect]
     Active Substance: TRASTUZUMAB
     Route: 042
     Dates: start: 20180712, end: 20220802
  3. PERJETA [Suspect]
     Active Substance: PERTUZUMAB
     Indication: HER2 positive breast cancer
     Dosage: FREQUENCY TEXT:OTHER
     Route: 042
     Dates: start: 20180621, end: 20180621
  4. PERJETA [Suspect]
     Active Substance: PERTUZUMAB
     Route: 042
     Dates: start: 20180712, end: 20220802
  5. TAXOTERE [Suspect]
     Active Substance: DOCETAXEL
     Indication: HER2 positive breast cancer
     Route: 042
     Dates: start: 20180623, end: 20181220
  6. CHOLECALCIFEROL [Concomitant]
     Active Substance: CHOLECALCIFEROL
     Dosage: ONGOING = CHECKED
     Route: 048
     Dates: start: 20190315
  7. CALCIUM [Concomitant]
     Active Substance: CALCIUM
     Dosage: ONGOING = CHECKED
     Route: 048
     Dates: start: 20190315
  8. ONDANSETRON [Concomitant]
     Active Substance: ONDANSETRON
     Indication: Premedication
     Route: 042
     Dates: start: 20180621, end: 20190110
  9. RANITIDINE [Concomitant]
     Active Substance: RANITIDINE
     Indication: Premedication
     Route: 042
     Dates: start: 20180621, end: 20190110
  10. METHYLPREDNISOLONE [Concomitant]
     Active Substance: METHYLPREDNISOLONE
     Indication: Premedication
     Route: 042
     Dates: start: 20180621, end: 20190110
  11. ASCORBIC ACID\FERRIC PYROPHOSPHATE [Concomitant]
     Active Substance: ASCORBIC ACID\FERRIC PYROPHOSPHATE
     Indication: Prophylaxis
     Route: 048
     Dates: start: 20180612, end: 20190110
  12. PREDNISONE [Concomitant]
     Active Substance: PREDNISONE
     Indication: Prophylaxis
     Route: 048
     Dates: start: 20180621, end: 20190110
  13. POTASSIUM BICARBONATE\SODIUM ALGINATE [Concomitant]
     Active Substance: POTASSIUM BICARBONATE\SODIUM ALGINATE
     Indication: Prophylaxis
     Route: 048
     Dates: start: 20180712, end: 20190110
  14. PANTOPRAZOLE SODIUM [Concomitant]
     Active Substance: PANTOPRAZOLE SODIUM
     Indication: Prophylaxis
     Route: 048
     Dates: start: 20180712, end: 20190110
  15. DEXAMETHASONE [Concomitant]
     Active Substance: DEXAMETHASONE
     Indication: Prophylaxis
     Route: 048
     Dates: start: 20180621, end: 20190110
  16. CHLORPHENIRAMINE MALEATE [Concomitant]
     Active Substance: CHLORPHENIRAMINE MALEATE
     Indication: Premedication
     Route: 042
     Dates: start: 20180621, end: 20190110
  17. ZOMETA [Concomitant]
     Active Substance: ZOLEDRONIC ACID
     Route: 042
     Dates: start: 20190709, end: 20211221
  18. DEXAMETHASONE SODIUM PHOSPHATE [Concomitant]
     Active Substance: DEXAMETHASONE PHOSPHATE\DEXAMETHASONE SODIUM PHOSPHATE
     Route: 048
     Dates: start: 20220916, end: 20221028
  19. METOCLOPRAMIDE HYDROCHLORIDE [Concomitant]
     Active Substance: METOCLOPRAMIDE HYDROCHLORIDE
     Route: 048
     Dates: start: 20220916
  20. OMEPRAZOLE [Concomitant]
     Active Substance: OMEPRAZOLE
     Route: 048
     Dates: start: 20220906
  21. ESOMEPRAZOLE [Concomitant]
     Active Substance: ESOMEPRAZOLE
  22. ZOFRAN [Concomitant]
     Active Substance: ONDANSETRON HYDROCHLORIDE

REACTIONS (1)
  - COVID-19 [Recovered/Resolved]

NARRATIVE: CASE EVENT DATE: 20220528
